FAERS Safety Report 7058122-5 (Version None)
Quarter: 2010Q4

REPORT INFORMATION
  Report Type: 
  Country: None (occurrence: None)
  Receive Date: 20101022
  Receipt Date: 20101014
  Transmission Date: 20110411
  Serious: Yes (Other)
  Sender: FDA-Public Use
  Company Number: JP-MERCK-1010USA02193

PATIENT
  Age: 87 Year
  Sex: Female
  Weight: 29 kg

DRUGS (13)
  1. STROMECTOL [Suspect]
     Indication: ACARODERMATITIS
     Route: 048
     Dates: start: 20100930, end: 20100930
  2. FUROSEMIDE [Concomitant]
     Indication: CARDIAC FAILURE CONGESTIVE
     Route: 048
     Dates: start: 20100817
  3. PIROLACTON [Concomitant]
     Indication: CARDIAC FAILURE CONGESTIVE
     Route: 048
     Dates: start: 20100817
  4. SAWADOL L [Concomitant]
     Indication: ANGINA PECTORIS
     Route: 048
     Dates: start: 20100817
  5. VASOLAN [Concomitant]
     Indication: ARRHYTHMIA
     Route: 048
     Dates: start: 20100817
  6. TAKEPRON [Concomitant]
     Indication: REFLUX OESOPHAGITIS
     Route: 048
     Dates: start: 20100817
  7. NIKORANMART [Concomitant]
     Indication: ANGINA PECTORIS
     Route: 048
     Dates: start: 20100817
  8. SINEMET [Concomitant]
     Indication: PARKINSON'S DISEASE
     Route: 048
     Dates: start: 20100817
  9. MINZAIN [Concomitant]
     Indication: INSOMNIA
     Route: 048
     Dates: start: 20100817
  10. SENNOSIDES [Concomitant]
     Indication: CONSTIPATION
     Route: 048
     Dates: start: 20100817
  11. ADONA [Concomitant]
     Indication: HAEMORRHAGE SUBCUTANEOUS
     Route: 048
     Dates: start: 20100925
  12. TRANEXAMIC ACID [Concomitant]
     Indication: EPISTAXIS
     Route: 048
     Dates: start: 20101003
  13. ZYRTEC [Concomitant]
     Indication: PRURITUS
     Route: 048
     Dates: start: 20100930

REACTIONS (1)
  - DEPRESSED LEVEL OF CONSCIOUSNESS [None]
